FAERS Safety Report 25232940 (Version 2)
Quarter: 2025Q2

REPORT INFORMATION
  Report Type: Spontaneous
  Country: DE (occurrence: DE)
  Receive Date: 20250424
  Receipt Date: 20250509
  Transmission Date: 20250717
  Serious: Yes (Hospitalization)
  Sender: ROVIPHARM SAS
  Company Number: DE-ROVI-20250432

PATIENT
  Age: 22 Year
  Sex: Male

DRUGS (1)
  1. RISPERIDONE [Suspect]
     Active Substance: RISPERIDONE
     Indication: Schizophrenia

REACTIONS (4)
  - Headache [Unknown]
  - Psychomotor retardation [Unknown]
  - Tremor [Unknown]
  - Personality change [Unknown]

NARRATIVE: CASE EVENT DATE: 20250204
